FAERS Safety Report 6598075-7 (Version None)
Quarter: 2010Q1

REPORT INFORMATION
  Report Type: 
  Country: None (occurrence: None)
  Receive Date: 20100216
  Receipt Date: 20100128
  Transmission Date: 20100710
  Serious: Yes (Hospitalization, Other)
  Sender: FDA-Public Use
  Company Number: 1-21531650

PATIENT
  Age: 81 Year
  Sex: Female

DRUGS (1)
  1. WARFARIN SODIUM [Suspect]
     Indication: THROMBOSIS PROPHYLAXIS
     Dosage: ONCE DAILY, ORAL
     Route: 048
     Dates: start: 20091210

REACTIONS (10)
  - ARTHRALGIA [None]
  - CAROTID ARTERIOSCLEROSIS [None]
  - FEELING ABNORMAL [None]
  - GAIT DISTURBANCE [None]
  - LIP DRY [None]
  - LIP SWELLING [None]
  - MENINGIOMA [None]
  - MIGRAINE [None]
  - ORAL DISCOMFORT [None]
  - SWOLLEN TONGUE [None]
